FAERS Safety Report 6398407-9 (Version None)
Quarter: 2009Q4

REPORT INFORMATION
  Report Type: 
  Country: None (occurrence: None)
  Receive Date: 20091007
  Receipt Date: 20090929
  Transmission Date: 20100525
  Serious: Yes (Hospitalization)
  Sender: FDA-Public Use
  Company Number: 2009AL006367

PATIENT
  Age: 52 Year
  Sex: Male

DRUGS (16)
  1. CITALOPRAM HYDROBROMIDE [Suspect]
     Indication: DEPRESSION
     Dosage: 40 MG; UNK; PO
     Route: 048
     Dates: start: 20011207, end: 20090803
  2. VALPROIC ACID [Concomitant]
  3. ACETYLSALICYLIC ACID [Concomitant]
  4. BISOPROLOL [Concomitant]
  5. CLOZAPINE [Concomitant]
  6. DOXAZOSIN MESYLATE [Concomitant]
  7. LACTULOSE [Concomitant]
  8. RAMIPRIL [Concomitant]
  9. RISPERIDONE [Concomitant]
  10. SIMVASTATIN [Concomitant]
  11. OMEPRAZOLE [Concomitant]
  12. ATENOLOL [Concomitant]
  13. SENNA [Concomitant]
  14. IBUPROFEN [Concomitant]
  15. DIAZEPAM [Concomitant]
  16. PIRENZEPINE [Concomitant]

REACTIONS (2)
  - HYPONATRAEMIA [None]
  - PLATELET COUNT DECREASED [None]
